FAERS Safety Report 9847356 (Version 2)
Quarter: 2014Q1

REPORT INFORMATION
  Report Type: Spontaneous
  Country: JP (occurrence: JP)
  Receive Date: 20140127
  Receipt Date: 20140221
  Transmission Date: 20141002
  Serious: Yes (Hospitalization)
  Sender: FDA-Public Use
  Company Number: JP-ABBVIE-14P-087-1193456-00

PATIENT
  Age: 82 Year
  Sex: Male

DRUGS (1)
  1. LEUPLIN SR [Suspect]
     Indication: PROSTATE CANCER
     Dosage: KIT
     Route: 058

REACTIONS (2)
  - Gastrointestinal necrosis [Unknown]
  - Mesenteric vein thrombosis [Unknown]
